FAERS Safety Report 8416828 (Version 4)
Quarter: 2013Q1

REPORT INFORMATION
  Report Type: Spontaneous
  Country: GB (occurrence: GB)
  Receive Date: 20120220
  Receipt Date: 20130123
  Transmission Date: 20140127
  Serious: Yes (Death, Other)
  Sender: FDA-Public Use
  Company Number: PHFR2012GB001241

PATIENT
  Sex: Male
  Weight: 86 kg

DRUGS (2)
  1. CLOZARIL [Suspect]
     Indication: SCHIZOPHRENIA
     Dosage: 350 MG, DAILY
     Route: 048
     Dates: start: 20010213
  2. MIRTAZAPINE [Concomitant]
     Indication: DEPRESSIVE SYMPTOM
     Dosage: 30 MG, DAILY
     Route: 048

REACTIONS (3)
  - Aspiration [Fatal]
  - Bipolar disorder [Unknown]
  - Congestive cardiomyopathy [Unknown]
